FAERS Safety Report 10961985 (Version 2)
Quarter: 2019Q2

REPORT INFORMATION
  Report Type: Spontaneous
  Country: US (occurrence: US)
  Receive Date: 20150327
  Receipt Date: 20190627
  Transmission Date: 20190711
  Serious: Yes (Death, Hospitalization, Other)
  Sender: FDA-Public Use
  Company Number: US-009507513-1503USA013066

PATIENT
  Sex: Male
  Weight: 84.81 kg

DRUGS (1)
  1. JANUVIA [Suspect]
     Active Substance: SITAGLIPTIN PHOSPHATE
     Indication: TYPE 2 DIABETES MELLITUS
     Dosage: 100 MILLIGRAM, QD
     Route: 048
     Dates: start: 20080717, end: 201301

REACTIONS (15)
  - Hypercalcaemia [Recovered/Resolved]
  - Renal failure [Unknown]
  - Hip surgery [Unknown]
  - Dehydration [Unknown]
  - Metastases to bone [Fatal]
  - Metastases to lung [Fatal]
  - Neuropathy peripheral [Unknown]
  - Acute kidney injury [Recovering/Resolving]
  - Metastases to liver [Fatal]
  - Prostate cancer [Unknown]
  - Anaemia [Unknown]
  - Pancreatic carcinoma metastatic [Fatal]
  - Cholelithiasis [Unknown]
  - Hyperlipidaemia [Unknown]
  - Asthenia [Recovering/Resolving]

NARRATIVE: CASE EVENT DATE: 2008
